FAERS Safety Report 9516096 (Version 1)
Quarter: 2013Q3

REPORT INFORMATION
  Report Type: Spontaneous
  Country: CH (occurrence: CH)
  Receive Date: 20130911
  Receipt Date: 20130911
  Transmission Date: 20140515
  Serious: Yes (Hospitalization, Other)
  Sender: FDA-Public Use
  Company Number: CH-VERTEX PHARMACEUTICALS INC-2013-009427

PATIENT
  Age: 57 Year
  Sex: Female

DRUGS (5)
  1. PEGASYS [Suspect]
     Indication: PRODUCT USED FOR UNKNOWN INDICATION
     Dosage: DOSAGE FORM: LIQUID
     Route: 058
     Dates: start: 20130624
  2. DAFALGAN [Concomitant]
     Indication: PRODUCT USED FOR UNKNOWN INDICATION
     Dosage: DOSAGE FORM: TABLETS
     Route: 048
     Dates: start: 20130624
  3. INCIVO [Suspect]
     Indication: CHRONIC HEPATITIS C
     Dosage: 3 DF TWO PER DAY
     Route: 048
     Dates: start: 20130624
  4. COPEGUS [Suspect]
     Indication: CHRONIC HEPATITIS C
     Dosage: DOSAGE FORM: COATED TABLET
     Route: 048
     Dates: start: 20130624
  5. COPEGUS [Suspect]
     Dosage: DOSAGE FORM: COATED TABLET
     Route: 048
     Dates: start: 20130805

REACTIONS (1)
  - Pancytopenia [Recovered/Resolved]
